FAERS Safety Report 18782069 (Version 1)
Quarter: 2021Q1

REPORT INFORMATION
  Report Type: Spontaneous
  Country: US (occurrence: US)
  Receive Date: 20210125
  Receipt Date: 20210125
  Transmission Date: 20210419
  Serious: Yes (Hospitalization, Disabling, Other)
  Sender: FDA-Public Use
  Company Number: US-MICRO LABS LIMITED-ML2021-00116

PATIENT
  Age: 77 Year
  Sex: Male

DRUGS (1)
  1. DIPHENHYDRAMINE HYDROCHLORIDE. [Suspect]
     Active Substance: DIPHENHYDRAMINE HYDROCHLORIDE
     Indication: INSOMNIA
     Dosage: TAKING BETWEEN 250 MG AND 750 MG OF DIPHENHYDRAMINE NIGHTLY FOR 30 YEARS

REACTIONS (3)
  - Dementia [Not Recovered/Not Resolved]
  - Urinary retention [Recovered/Resolved]
  - Intentional product misuse [Unknown]
